FAERS Safety Report 7711405-5 (Version None)
Quarter: 2011Q3

REPORT INFORMATION
  Report Type: 
  Country: None (occurrence: None)
  Receive Date: 20110826
  Receipt Date: 20110823
  Transmission Date: 20111222
  Serious: Yes (Other)
  Sender: FDA-Public Use
  Company Number: DE-AMGEN-DEUSP2011037530

PATIENT
  Age: 74 Year
  Sex: Female

DRUGS (1)
  1. NEULASTA [Suspect]
     Indication: PRODUCT USED FOR UNKNOWN INDICATION
     Route: 030

REACTIONS (8)
  - IMMOBILE [None]
  - NEOPLASM MALIGNANT [None]
  - LYMPHOCYTOSIS [None]
  - WHITE BLOOD CELL COUNT INCREASED [None]
  - BACK PAIN [None]
  - BONE PAIN [None]
  - PYREXIA [None]
  - INCORRECT ROUTE OF DRUG ADMINISTRATION [None]
